FAERS Safety Report 20145263 (Version 1)
Quarter: 2021Q4

REPORT INFORMATION
  Report Type: Spontaneous
  Country: US (occurrence: US)
  Receive Date: 20211203
  Receipt Date: 20211203
  Transmission Date: 20220303
  Serious: No
  Sender: FDA-Public Use
  Company Number: US-ELI_LILLY_AND_COMPANY-US202112000827

PATIENT
  Sex: Female

DRUGS (4)
  1. BASAGLAR [Suspect]
     Active Substance: INSULIN GLARGINE
     Indication: Gestational diabetes
     Dosage: 48 U, DAILY
     Route: 065
     Dates: start: 202109
  2. BASAGLAR [Suspect]
     Active Substance: INSULIN GLARGINE
     Indication: Gestational diabetes
     Dosage: 48 U, DAILY
     Route: 065
     Dates: start: 202109
  3. BASAGLAR [Suspect]
     Active Substance: INSULIN GLARGINE
     Dosage: 48 U, DAILY
     Route: 065
  4. BASAGLAR [Suspect]
     Active Substance: INSULIN GLARGINE
     Dosage: 48 U, DAILY
     Route: 065

REACTIONS (1)
  - Maternal exposure during pregnancy [Unknown]
